FAERS Safety Report 9123169 (Version 1)
Quarter: 2013Q1

REPORT INFORMATION
  Report Type: Report from Study
  Country: US (occurrence: US)
  Receive Date: 20130115
  Receipt Date: 20130115
  Transmission Date: 20140127
  Serious: Yes (Hospitalization)
  Sender: FDA-Public Use
  Company Number: US-PFIZER INC-2013009200

PATIENT
  Age: 72 Year
  Sex: Female
  Weight: 95.3 kg

DRUGS (3)
  1. REVATIO [Suspect]
     Dosage: UNK
  2. REMODULIN [Suspect]
     Indication: COR PULMONALE CHRONIC
     Dosage: 33.12 UG/KG, 1X/DAY (0.023 UG/KG, 1 IN 1MIN)
     Route: 042
     Dates: start: 20121005
  3. BABY ASA [Concomitant]
     Indication: PRODUCT USED FOR UNKNOWN INDICATION
     Dosage: UNK

REACTIONS (1)
  - Pulmonary hypertension [Recovering/Resolving]
